FAERS Safety Report 13678778 (Version 1)
Quarter: 2017Q2

REPORT INFORMATION
  Report Type: Spontaneous
  Country: US (occurrence: US)
  Receive Date: 20170622
  Receipt Date: 20170622
  Transmission Date: 20170830
  Serious: Yes (Other)
  Sender: FDA-Public Use
  Company Number: US-JNJFOC-20170614336

PATIENT
  Age: 65 Year
  Sex: Female

DRUGS (8)
  1. HALDOL [Suspect]
     Active Substance: HALOPERIDOL
     Indication: PRODUCT USED FOR UNKNOWN INDICATION
     Route: 065
  2. MYRBETRIQ [Interacting]
     Active Substance: MIRABEGRON
     Indication: INCONTINENCE
     Dosage: TABLET CUT IN HALF; ACTUAL DOSE= 25 MG
     Route: 065
  3. MYRBETRIQ [Interacting]
     Active Substance: MIRABEGRON
     Indication: INCONTINENCE
     Route: 065
  4. ASPIRIN. [Concomitant]
     Active Substance: ASPIRIN
     Route: 065
  5. OMEPRAZOLE. [Concomitant]
     Active Substance: OMEPRAZOLE
     Route: 065
  6. MYRBETRIQ [Interacting]
     Active Substance: MIRABEGRON
     Indication: INCONTINENCE
     Route: 065
  7. CALCIUM [Concomitant]
     Active Substance: CALCIUM
     Route: 065
  8. VITAMIN C [Concomitant]
     Active Substance: ASCORBIC ACID
     Route: 065

REACTIONS (6)
  - Depression [Unknown]
  - Anxiety [Unknown]
  - Dizziness [Unknown]
  - Cerebral disorder [Recovered/Resolved]
  - Drug interaction [Unknown]
  - Pain [Unknown]
